FAERS Safety Report 24630068 (Version 1)
Quarter: 2024Q4

REPORT INFORMATION
  Report Type: Report from Study
  Country: CA (occurrence: None)
  Receive Date: 20241118
  Receipt Date: 20241118
  Transmission Date: 20250115
  Serious: Yes (Hospitalization)
  Sender: ORION
  Company Number: CA-PFIZER INC-202400098532

PATIENT
  Age: 50 Year
  Sex: Female

DRUGS (39)
  1. METHOTREXATE [Suspect]
     Active Substance: METHOTREXATE
     Indication: Product used for unknown indication
  2. RITUXIMAB [Suspect]
     Active Substance: RITUXIMAB
     Indication: Systemic lupus erythematosus
  3. RITUXIMAB [Suspect]
     Active Substance: RITUXIMAB
     Indication: Sjogren^s syndrome
  4. RITUXIMAB [Suspect]
     Active Substance: RITUXIMAB
     Indication: Pleurisy
  5. RITUXIMAB [Suspect]
     Active Substance: RITUXIMAB
     Indication: Pericarditis
  6. RITUXIMAB [Suspect]
     Active Substance: RITUXIMAB
     Indication: Anti-neutrophil cytoplasmic antibody positive vasculitis
  7. RITUXIMAB [Suspect]
     Active Substance: RITUXIMAB
  8. RITUXIMAB [Suspect]
     Active Substance: RITUXIMAB
  9. RITUXIMAB [Suspect]
     Active Substance: RITUXIMAB
  10. RITUXIMAB [Suspect]
     Active Substance: RITUXIMAB
  11. RITUXIMAB [Suspect]
     Active Substance: RITUXIMAB
  12. ACETAMINOPHEN [Concomitant]
     Active Substance: ACETAMINOPHEN
  13. ANTI NAUSEANT [Concomitant]
  14. AZATHIOPRINE SODIUM [Concomitant]
     Active Substance: AZATHIOPRINE SODIUM
  15. BUDESONIDE\FORMOTEROL FUMARATE [Concomitant]
     Active Substance: BUDESONIDE\FORMOTEROL FUMARATE
  16. BUDESONIDE\FORMOTEROL FUMARATE [Concomitant]
     Active Substance: BUDESONIDE\FORMOTEROL FUMARATE
  17. COLCHICINE [Concomitant]
     Active Substance: COLCHICINE
  18. DIPHENHYDRAMINE [Concomitant]
     Active Substance: DIPHENHYDRAMINE
  19. IBUPROFEN [Concomitant]
     Active Substance: IBUPROFEN
  20. MEDROL [Concomitant]
     Active Substance: METHYLPREDNISOLONE
  21. METHYLPREDNISOLONE [Concomitant]
     Active Substance: METHYLPREDNISOLONE
  22. MONTELUKAST [Concomitant]
     Active Substance: MONTELUKAST
  23. MYCOPHENOLATE MOFETIL HYDROCHLORIDE [Concomitant]
     Active Substance: MYCOPHENOLATE MOFETIL HYDROCHLORIDE
  24. PANTOPRAZOLE [Concomitant]
     Active Substance: PANTOPRAZOLE
  25. PLAQUENIL [Concomitant]
     Active Substance: HYDROXYCHLOROQUINE SULFATE
  26. PLAQUENIL [Concomitant]
     Active Substance: HYDROXYCHLOROQUINE SULFATE
  27. PREMARIN [Concomitant]
     Active Substance: ESTROGENS, CONJUGATED
  28. RITUXIMAB [Concomitant]
     Active Substance: RITUXIMAB
     Indication: Systemic lupus erythematosus
  29. RITUXIMAB [Concomitant]
     Active Substance: RITUXIMAB
     Indication: Sjogren^s syndrome
  30. RITUXIMAB [Concomitant]
     Active Substance: RITUXIMAB
     Indication: Pleurisy
  31. RITUXIMAB [Concomitant]
     Active Substance: RITUXIMAB
  32. RITUXIMAB [Concomitant]
     Active Substance: RITUXIMAB
  33. RITUXIMAB [Concomitant]
     Active Substance: RITUXIMAB
  34. RITUXIMAB [Concomitant]
     Active Substance: RITUXIMAB
  35. RITUXIMAB [Concomitant]
     Active Substance: RITUXIMAB
  36. RITUXIMAB [Concomitant]
     Active Substance: RITUXIMAB
  37. RITUXIMAB [Concomitant]
     Active Substance: RITUXIMAB
  38. ACETAMINOPHEN\TRAMADOL [Concomitant]
     Active Substance: ACETAMINOPHEN\TRAMADOL
  39. ACETAMINOPHEN\TRAMADOL [Concomitant]
     Active Substance: ACETAMINOPHEN\TRAMADOL

REACTIONS (5)
  - Drug ineffective for unapproved indication [Unknown]
  - Nasal congestion [Unknown]
  - Oral pruritus [Unknown]
  - Surgery [Unknown]
  - Product use in unapproved indication [Unknown]
